FAERS Safety Report 12387566 (Version 2)
Quarter: 2016Q2

REPORT INFORMATION
  Report Type: Spontaneous
  Country: ZA (occurrence: ZA)
  Receive Date: 20160520
  Receipt Date: 20160526
  Transmission Date: 20160815
  Serious: Yes (Death, Other)
  Sender: FDA-Public Use
  Company Number: ZA-CIPLA LTD.-2016ZA05443

PATIENT

DRUGS (2)
  1. WARFARIN [Suspect]
     Active Substance: WARFARIN
     Indication: ANTICOAGULANT THERAPY
     Dosage: 2 MG (1 MG X 2), QD
     Route: 048
  2. WARFARIN [Suspect]
     Active Substance: WARFARIN
     Dosage: 2 TABLETS OF 1MG DAILY
     Route: 065

REACTIONS (4)
  - Medication error [Unknown]
  - Vaginal haemorrhage [Unknown]
  - International normalised ratio increased [Unknown]
  - Cerebrovascular accident [Fatal]
